FAERS Safety Report 4417731-X (Version None)
Quarter: 2004Q3

REPORT INFORMATION
  Report Type: 
  Country: None (occurrence: None)
  Receive Date: 20040803
  Receipt Date: 20040721
  Transmission Date: 20050211
  Serious: Yes (Death, Other)
  Sender: FDA-Public Use
  Company Number: 2003121006

PATIENT
  Age: 3 Year
  Sex: Male

DRUGS (4)
  1. VFEND [Suspect]
     Indication: ASPERGILLOSIS
     Dosage: BID, INTRAVENOUS
     Route: 042
     Dates: start: 20030501, end: 20030101
  2. BACTRIM (SULFMAETHOXAZOLE,TRIMETHOPRIM) [Concomitant]
  3. PHENOXYMETHYLPENICILLIN (PHENOXYMETHYLPENICILLIN) [Concomitant]
  4. PARENTERAL (SODIUM ACETATE TRIHYDRATE, POTASSIUM CHLORIDE, SODIUM CHLO [Concomitant]

REACTIONS (3)
  - ASPERGILLOSIS [None]
  - LUNG DISORDER [None]
  - MUCORMYCOSIS [None]
